FAERS Safety Report 22617108 (Version 1)
Quarter: 2023Q2

REPORT INFORMATION
  Report Type: Spontaneous
  Country: NL (occurrence: NL)
  Receive Date: 20230620
  Receipt Date: 20230620
  Transmission Date: 20230722
  Serious: Yes (Life-Threatening, Hospitalization, Disabling, Other)
  Sender: FDA-Public Use
  Company Number: None

PATIENT
  Sex: Female
  Weight: 75 kg

DRUGS (3)
  1. HALDOL [Suspect]
     Active Substance: HALOPERIDOL
     Indication: Psychotic disorder
     Dosage: DIVERS
     Route: 065
     Dates: start: 20120301, end: 20220501
  2. ZYPREXA [Suspect]
     Active Substance: OLANZAPINE
     Indication: Psychotic disorder
     Dosage: 1X DAAGS
     Route: 065
     Dates: start: 20150601, end: 20151211
  3. LORAZEPAM [Concomitant]
     Active Substance: LORAZEPAM
     Dosage: 0,5 MG (MILLIGRAM)
     Route: 065

REACTIONS (8)
  - Metabolic disorder [Not Recovered/Not Resolved]
  - Mental disorder [Recovering/Resolving]
  - Executive dysfunction [Not Recovered/Not Resolved]
  - Depressed level of consciousness [Recovering/Resolving]
  - Thrombosis [Not Recovered/Not Resolved]
  - Emotional poverty [Recovering/Resolving]
  - Leiomyoma [Not Recovered/Not Resolved]
  - Cognitive disorder [Not Recovered/Not Resolved]
